FAERS Safety Report 14842969 (Version 3)
Quarter: 2019Q1

REPORT INFORMATION
  Report Type: Spontaneous
  Country: BE (occurrence: BE)
  Receive Date: 20180503
  Receipt Date: 20190311
  Transmission Date: 20190417
  Serious: Yes (Death, Life-Threatening, Other)
  Sender: FDA-Public Use
  Company Number: BE-009507513-1803BEL012351

PATIENT
  Age: 73 Year
  Sex: Male

DRUGS (9)
  1. ZALDIAR [Concomitant]
     Active Substance: ACETAMINOPHEN\TRAMADOL HYDROCHLORIDE
     Indication: PAIN
     Dosage: MAX 3 TIMES A DAY IN CASE OF PAIN
  2. KEYTRUDA [Suspect]
     Active Substance: PEMBROLIZUMAB
     Indication: BRONCHIAL NEOPLASM BENIGN
  3. D-CURE [Concomitant]
     Active Substance: CHOLECALCIFEROL
  4. RELVAR ELLIPTA [Concomitant]
     Active Substance: FLUTICASONE FUROATE\VILANTEROL TRIFENATATE
     Dosage: 1 DOSAGE FORM, QD
     Route: 048
  5. SPIRIVA [Concomitant]
     Active Substance: TIOTROPIUM BROMIDE MONOHYDRATE
     Dosage: 1 DOSAGE FORM, QD
  6. KEYTRUDA [Suspect]
     Active Substance: PEMBROLIZUMAB
     Indication: ADENOCARCINOMA
     Dosage: INFUSION OF 200 MG EVERY 3 WEEKS
     Route: 042
     Dates: start: 20180221, end: 20180313
  7. DUOVENT [Concomitant]
     Active Substance: FENOTEROL HYDROBROMIDE
     Dosage: 2 DOSAGE FORM, PRN
     Route: 048
  8. PANTOMED (PANTOPRAZOLE SODIUM) [Concomitant]
     Active Substance: PANTOPRAZOLE SODIUM
     Dosage: 40 MILLIGRAM, QD
     Route: 048
  9. XANTHIUM [Concomitant]

REACTIONS (6)
  - Stevens-Johnson syndrome [Recovering/Resolving]
  - Toxic epidermal necrolysis [Fatal]
  - C-reactive protein increased [Recovering/Resolving]
  - Rash macular [Fatal]
  - Systemic inflammatory response syndrome [Recovering/Resolving]
  - Dermatitis bullous [Fatal]

NARRATIVE: CASE EVENT DATE: 201803
